FAERS Safety Report 24080556 (Version 1)
Quarter: 2024Q3

REPORT INFORMATION
  Report Type: Spontaneous
  Country: TR (occurrence: TR)
  Receive Date: 20240711
  Receipt Date: 20240711
  Transmission Date: 20241017
  Serious: Yes (Other)
  Sender: NOVARTIS
  Company Number: TR-002147023-NVSC2024TR141490

PATIENT
  Sex: Female

DRUGS (1)
  1. EVEROLIMUS [Suspect]
     Active Substance: EVEROLIMUS
     Indication: Rhabdomyoma
     Dosage: 0.1 MG, QD
     Route: 065

REACTIONS (6)
  - Rhabdomyoma [Unknown]
  - Malignant neoplasm progression [Unknown]
  - Hypertriglyceridaemia [Unknown]
  - Blood triglycerides increased [Unknown]
  - Product use in unapproved indication [Unknown]
  - Product use issue [Unknown]
